FAERS Safety Report 7561306-0 (Version None)
Quarter: 2011Q2

REPORT INFORMATION
  Report Type: 
  Country: None (occurrence: None)
  Receive Date: 20110621
  Receipt Date: 20101125
  Transmission Date: 20111010
  Serious: No
  Sender: FDA-Public Use
  Company Number: US-ASTRAZENECA-2010SE49826

PATIENT
  Age: 63 Year
  Sex: Male
  Weight: 69.9 kg

DRUGS (4)
  1. PULMICORT FLEXHALER [Suspect]
     Route: 055
  2. ALBUTEROL SULFATE AUTOHALER [Concomitant]
  3. SEREVENT [Concomitant]
  4. SYNTHROID [Concomitant]

REACTIONS (1)
  - ASTHMA [None]
